FAERS Safety Report 25480829 (Version 1)
Quarter: 2025Q2

REPORT INFORMATION
  Report Type: Spontaneous
  Country: TR (occurrence: TR)
  Receive Date: 20250625
  Receipt Date: 20250625
  Transmission Date: 20250717
  Serious: Yes (Hospitalization)
  Sender: MERCK SHARP & DOHME LLC
  Company Number: TR-009507513-2298265

PATIENT
  Age: 59 Year
  Sex: Male

DRUGS (3)
  1. PEMBROLIZUMAB [Suspect]
     Active Substance: PEMBROLIZUMAB
     Indication: Laryngeal cancer
  2. CISPLATIN [Concomitant]
     Active Substance: CISPLATIN
     Indication: Laryngeal cancer
  3. FLUOROURACIL [Concomitant]
     Active Substance: FLUOROURACIL
     Indication: Laryngeal cancer

REACTIONS (2)
  - Myasthenic syndrome [Recovered/Resolved]
  - Radiculopathy [Recovered/Resolved]
